FAERS Safety Report 24207462 (Version 1)
Quarter: 2024Q3

REPORT INFORMATION
  Report Type: Spontaneous
  Country: US (occurrence: US)
  Receive Date: 20240814
  Receipt Date: 20240814
  Transmission Date: 20241017
  Serious: No
  Sender: APOTEX
  Company Number: US-APOTEX-2024AP009154

PATIENT
  Sex: Female

DRUGS (1)
  1. IPRATROPIUM BROMIDE [Suspect]
     Active Substance: IPRATROPIUM BROMIDE\IPRATROPIUM BROMIDE ANHYDROUS
     Indication: Vasomotor rhinitis
     Dosage: 2 DOSAGE FORM, TID
     Route: 045

REACTIONS (1)
  - Inappropriate schedule of product administration [Unknown]
